FAERS Safety Report 4947769-5 (Version None)
Quarter: 2006Q1

REPORT INFORMATION
  Report Type: 
  Country: None (occurrence: None)
  Receive Date: 20060320
  Receipt Date: 20060306
  Transmission Date: 20060701
  Serious: Yes (Hospitalization, Other)
  Sender: FDA-Public Use
  Company Number: FR-SP-2006-00618

PATIENT
  Age: 70 Year

DRUGS (1)
  1. IMMUCYST [Suspect]
     Indication: BLADDER CANCER
     Route: 065

REACTIONS (3)
  - BOVINE TUBERCULOSIS [None]
  - HYPERTHERMIA [None]
  - PULMONARY TUBERCULOSIS [None]
